FAERS Safety Report 12802335 (Version 1)
Quarter: 2016Q4

REPORT INFORMATION
  Report Type: Spontaneous
  Country: US (occurrence: US)
  Receive Date: 20161003
  Receipt Date: 20161003
  Transmission Date: 20170207
  Serious: No
  Sender: FDA-Public Use
  Company Number: US-JAZZ-2016-US-012164

PATIENT
  Sex: Male

DRUGS (41)
  1. XYREM [Suspect]
     Active Substance: SODIUM OXYBATE
     Dosage: DOSE ADJUSTMENTS
     Route: 048
     Dates: start: 201012, end: 201407
  2. TRILEPTAL [Concomitant]
     Active Substance: OXCARBAZEPINE
  3. FISH OIL CONCENTRATE [Concomitant]
  4. STOOL SOFTENER (DOCUSATE CALCIUM) [Concomitant]
     Active Substance: DOCUSATE CALCIUM
  5. AMBIEN [Concomitant]
     Active Substance: ZOLPIDEM TARTRATE
  6. ZINC [Concomitant]
     Active Substance: ZINC\ZINC CHLORIDE
  7. HYDROMORPHONE [Concomitant]
     Active Substance: HYDROMORPHONE
  8. ZANAFLEX [Concomitant]
     Active Substance: TIZANIDINE HYDROCHLORIDE
  9. DOCUSATE CALCIUM. [Concomitant]
     Active Substance: DOCUSATE CALCIUM
  10. XYREM [Suspect]
     Active Substance: SODIUM OXYBATE
     Indication: FIBROMYALGIA
     Dosage: 3 G, BID
     Route: 048
     Dates: start: 201010, end: 201012
  11. SENOKOT [Concomitant]
     Active Substance: SENNOSIDES
  12. VITAMIN D [Concomitant]
     Active Substance: CHOLECALCIFEROL
  13. PROPRANOLOL ER [Concomitant]
  14. MORPHINE SULF CR [Concomitant]
  15. MS CONTIN [Concomitant]
     Active Substance: MORPHINE SULFATE
  16. VIIBRYD [Concomitant]
     Active Substance: VILAZODONE HYDROCHLORIDE
  17. XYREM [Suspect]
     Active Substance: SODIUM OXYBATE
     Dosage: 4 G, SECOND DOSE
     Route: 048
     Dates: start: 201407
  18. BACLOFEN. [Concomitant]
     Active Substance: BACLOFEN
  19. ZOLPIDEM [Concomitant]
     Active Substance: ZOLPIDEM\ZOLPIDEM TARTRATE
  20. MIRTAZAPINE. [Concomitant]
     Active Substance: MIRTAZAPINE
  21. XYREM [Suspect]
     Active Substance: SODIUM OXYBATE
     Dosage: 5 G, FIRST DOSE
     Route: 048
     Dates: start: 201407
  22. OXYCODONE HYDROCHLORIDE. [Concomitant]
     Active Substance: OXYCODONE HYDROCHLORIDE
  23. TOPIRAMATE. [Concomitant]
     Active Substance: TOPIRAMATE
  24. ZINC GLUCONATE [Concomitant]
     Active Substance: ZINC GLUCONATE
  25. DHEA [Concomitant]
     Active Substance: PRASTERONE
  26. OMEPRAZOLE DR [Concomitant]
     Active Substance: OMEPRAZOLE
  27. FENTANYL. [Concomitant]
     Active Substance: FENTANYL
  28. VALIUM [Concomitant]
     Active Substance: DIAZEPAM
  29. MELATONIN [Concomitant]
     Active Substance: MELATONIN
  30. BETAINE HCL [Concomitant]
  31. SENNOSIDES. [Concomitant]
     Active Substance: SENNOSIDES
  32. MS CONTIN [Concomitant]
     Active Substance: MORPHINE SULFATE
  33. MULTIVITAMINS WITH IRON [Concomitant]
     Active Substance: IRON\VITAMINS
  34. NORTRIPTYLINE HCL [Concomitant]
     Active Substance: NORTRIPTYLINE HYDROCHLORIDE
  35. CYMBALTA [Concomitant]
     Active Substance: DULOXETINE HYDROCHLORIDE
  36. IBUPROFEN. [Concomitant]
     Active Substance: IBUPROFEN
  37. N-ACETYL-L-CYSTEINE [Concomitant]
     Active Substance: ACETYLCYSTEINE
  38. CELEBREX [Concomitant]
     Active Substance: CELECOXIB
  39. PROBIOTIC [Concomitant]
     Active Substance: PROBIOTICS NOS
  40. TESTOSTERONE. [Concomitant]
     Active Substance: TESTOSTERONE
  41. DIAZEPAM. [Concomitant]
     Active Substance: DIAZEPAM

REACTIONS (1)
  - Dental caries [Unknown]
